FAERS Safety Report 10239407 (Version 1)
Quarter: 2014Q1

REPORT INFORMATION
  Report Type: Spontaneous
  Country: US (occurrence: None)
  Receive Date: 20140306
  Receipt Date: 20140306
  Transmission Date: 20141002
  Serious: Yes (Other)
  Sender: FDA-Public Use
  Company Number: 163-21880-13034699

PATIENT
  Age: 65 Year
  Sex: Male

DRUGS (25)
  1. REVLIMID (LENALIDOMIDE) (5 MILLIGRAM, CAPSULES) [Suspect]
     Indication: PARAPROTEINAEMIA
     Dosage: 5 MG, 21 IN 21 D, PO
     Route: 048
     Dates: start: 20120222
  2. REVLIMID (LENALIDOMIDE) (5 MILLIGRAM, CAPSULES) [Suspect]
     Indication: PLASMA CELL MYELOMA
     Dosage: 5 MG, 21 IN 21 D, PO
     Route: 048
     Dates: start: 20120222
  3. DOCUSATE SODIUM (DOCUSATE SODIUM) [Concomitant]
  4. MIRALAX (MACROGOL) [Concomitant]
  5. ULTRAM (TRAMADOL HYDROCHLORIDE) [Concomitant]
  6. GABAPENTIN (GABAPENTIN) [Concomitant]
  7. OMEPRAZOLE (OMEPRAZOLE) [Concomitant]
  8. B COMPLEX (BECOSYM FORTE) [Concomitant]
  9. CLARITIN (LORATADINE) [Concomitant]
  10. PROAIR (FLUTICASONE PROPIONATE) [Concomitant]
  11. ADVAIR DISKUS [Concomitant]
  12. LIPITOR (ATORVASTATIN) [Concomitant]
  13. VALIUM (DIAZEPAM) [Concomitant]
  14. LORTAB (VICODIN) [Concomitant]
  15. FENOFIBRATE (FENOFIBRATE) (FENOFIBRATE) [Concomitant]
  16. FINASTERIDE (FINASTERIDE) [Concomitant]
  17. VERAPAMIL (VERAPAMIL) [Concomitant]
  18. DIOVAN (VALSARTAN) [Concomitant]
  19. MAGNESIUM (MAGNESIUM) [Concomitant]
  20. ASPIRIN (ACETYLSALICYLIC ACID) [Concomitant]
  21. DSS [Concomitant]
  22. FISH OIL (FISH OIL) [Concomitant]
  23. CO Q 10 (UBIDECARENONE) [Concomitant]
  24. TYLENOL (PARACETAMOL) [Concomitant]
  25. CENTRUM SILVER (CENTRUM SILVER) [Concomitant]

REACTIONS (4)
  - Eosinophil count increased [None]
  - Rhinorrhoea [None]
  - Influenza [None]
  - Dizziness [None]
